FAERS Safety Report 9996411 (Version 3)
Quarter: 2014Q2

REPORT INFORMATION
  Report Type: Spontaneous
  Country: JP (occurrence: JP)
  Receive Date: 20140311
  Receipt Date: 20140401
  Transmission Date: 20141212
  Serious: Yes (Other)
  Sender: FDA-Public Use
  Company Number: JP-GLAXOSMITHKLINE-B0974976A

PATIENT
  Age: 10 Year
  Sex: Female

DRUGS (3)
  1. RELENZA [Suspect]
     Indication: INFLUENZA
     Dosage: 10MG PER DAY
     Route: 055
     Dates: start: 20140304, end: 20140304
  2. EBASTINE [Concomitant]
     Dosage: 5MG PER DAY
     Route: 048
     Dates: start: 20140304
  3. CALONAL [Concomitant]
     Route: 048
     Dates: start: 20140304

REACTIONS (4)
  - Loss of consciousness [Recovered/Resolved]
  - Muscle spasms [Recovered/Resolved]
  - Fall [Recovered/Resolved]
  - Memory impairment [Unknown]
